FAERS Safety Report 16832253 (Version 1)
Quarter: 2019Q3

REPORT INFORMATION
  Report Type: Spontaneous
  Country: US (occurrence: US)
  Receive Date: 20190730
  Receipt Date: 20190730
  Transmission Date: 20191005
  Serious: No
  Sender: FDA-Public Use
  Company Number: None

PATIENT
  Age: 49 Year
  Sex: Female
  Weight: 61.23 kg

DRUGS (10)
  1. AJOVY [Suspect]
     Active Substance: FREMANEZUMAB-VFRM
     Indication: MIGRAINE
     Dosage: ?          QUANTITY:1.5 ML MILLILITRE(S);?
     Route: 058
     Dates: start: 20190612, end: 20190711
  2. ONE-A-DAY NOS [Concomitant]
     Active Substance: MINERALS\VITAMINS
  3. SOMA [Concomitant]
     Active Substance: CARISOPRODOL
  4. POT [Concomitant]
  5. NORCO [Concomitant]
     Active Substance: ACETAMINOPHEN\HYDROCODONE BITARTRATE
  6. FISH OIL [Concomitant]
     Active Substance: FISH OIL
  7. DEPAKOTE [Concomitant]
     Active Substance: DIVALPROEX SODIUM
  8. VALIUM [Concomitant]
     Active Substance: DIAZEPAM
  9. MOVANTIK [Concomitant]
     Active Substance: NALOXEGOL OXALATE
  10. CYMBALTA [Concomitant]
     Active Substance: DULOXETINE HYDROCHLORIDE

REACTIONS (2)
  - Tremor [None]
  - Chills [None]

NARRATIVE: CASE EVENT DATE: 20190711
